FAERS Safety Report 16354064 (Version 4)
Quarter: 2019Q4

REPORT INFORMATION
  Report Type: Spontaneous
  Country: CA (occurrence: CA)
  Receive Date: 20190524
  Receipt Date: 20191216
  Transmission Date: 20200122
  Serious: Yes (Death, Other)
  Sender: FDA-Public Use
  Company Number: CA-PFIZER INC-2019218791

PATIENT

DRUGS (1)
  1. FLUCONAZOLE. [Suspect]
     Active Substance: FLUCONAZOLE
     Dosage: UNK
     Route: 064

REACTIONS (2)
  - Death neonatal [Fatal]
  - Maternal exposure during pregnancy [Fatal]
